FAERS Safety Report 5863823-8 (Version None)
Quarter: 2008Q3

REPORT INFORMATION
  Report Type: 
  Country: None (occurrence: None)
  Receive Date: 20080827
  Receipt Date: 20080812
  Transmission Date: 20090109
  Serious: Yes (Hospitalization)
  Sender: FDA-Public Use
  Company Number: 1-16513659

PATIENT
  Age: 21 Year
  Sex: Female
  Weight: 49.8957 kg

DRUGS (2)
  1. SOLODYN [Suspect]
     Indication: ACNE
     Dosage: 90 MG DAILY ORAL
     Route: 048
     Dates: start: 20070823, end: 20080601
  2. YAZ [Concomitant]

REACTIONS (13)
  - ARTHRALGIA [None]
  - ASTHENIA [None]
  - BIPOLAR DISORDER [None]
  - DECREASED APPETITE [None]
  - DYSPNOEA [None]
  - FATIGUE [None]
  - MYALGIA [None]
  - NAUSEA [None]
  - PHARMACEUTICAL PRODUCT COMPLAINT [None]
  - PYREXIA [None]
  - SKIN EXFOLIATION [None]
  - THERAPEUTIC AGENT TOXICITY [None]
  - VOMITING [None]
